FAERS Safety Report 9052521 (Version 1)
Quarter: 2013Q1

REPORT INFORMATION
  Report Type: Spontaneous
  Country: CA (occurrence: CA)
  Receive Date: 20130207
  Receipt Date: 20130207
  Transmission Date: 20140127
  Serious: Yes (Death, Other)
  Sender: FDA-Public Use
  Company Number: PHHY2012CA127079

PATIENT
  Sex: 0

DRUGS (1)
  1. IMATINIB [Suspect]
     Dosage: UNK UKN, UNK

REACTIONS (6)
  - Complications of bone marrow transplant [Fatal]
  - Ventricular hypertrophy [Unknown]
  - Obliterative bronchiolitis [Unknown]
  - Organising pneumonia [Unknown]
  - Respiratory failure [Unknown]
  - Acute myeloid leukaemia recurrent [Unknown]
